FAERS Safety Report 17998479 (Version 1)
Quarter: 2020Q3

REPORT INFORMATION
  Report Type: Spontaneous
  Country: US (occurrence: US)
  Receive Date: 20200708
  Receipt Date: 20200708
  Transmission Date: 20201103
  Serious: Yes (Hospitalization)
  Sender: FDA-Public Use
  Company Number: None

PATIENT
  Age: 18 Year
  Sex: Male

DRUGS (1)
  1. TRIKAFTA [Suspect]
     Active Substance: ELEXACAFTOR\IVACAFTOR\TEZACAFTOR
     Indication: CYSTIC FIBROSIS
     Dosage: ?          OTHER DOSE:2 QAM, 1 QPM;?
     Route: 048
     Dates: start: 202002, end: 202005

REACTIONS (2)
  - Infective pulmonary exacerbation of cystic fibrosis [None]
  - Therapy interrupted [None]

NARRATIVE: CASE EVENT DATE: 20200708
